FAERS Safety Report 24121221 (Version 2)
Quarter: 2025Q4

REPORT INFORMATION
  Report Type: Spontaneous
  Country: GB (occurrence: GB)
  Receive Date: 20240722
  Receipt Date: 20251006
  Transmission Date: 20260117
  Serious: Yes (Other)
  Sender: ASCEND THERAPEUTICS US, LLC
  Company Number: GB-Ascend Therapeutics US, LLC-2159440

PATIENT
  Age: 51 Year
  Sex: Female

DRUGS (28)
  1. ESTROGEL [Suspect]
     Active Substance: ESTRADIOL
     Indication: Menopause
     Dates: start: 20221026, end: 202310
  2. UTROGESTAN [Suspect]
     Active Substance: PROGESTERONE
     Dates: start: 20230126
  3. PROPRANOLOL [Concomitant]
     Active Substance: PROPRANOLOL HYDROCHLORIDE
     Dates: start: 20240423
  4. OMEPRAZOLE [Concomitant]
     Active Substance: OMEPRAZOLE
     Dates: start: 20240130
  5. FAMOTIDINE [Concomitant]
     Active Substance: FAMOTIDINE
     Dates: start: 20240130
  6. INTRAROSA [Concomitant]
     Active Substance: PRASTERONE
     Dates: start: 20240124
  7. DULOXETINE [Concomitant]
     Active Substance: DULOXETINE
     Dates: start: 20240111
  8. POLYETHYLENE GLYCOL 3350\POTASSIUM CHLORIDE\SODIUM BICARBONATE\SODIUM [Concomitant]
     Active Substance: POLYETHYLENE GLYCOL 3350\POTASSIUM CHLORIDE\SODIUM BICARBONATE\SODIUM CHLORIDE
     Dates: start: 20231004
  9. NAPROXEN [Concomitant]
     Active Substance: NAPROXEN
     Dates: start: 20230810
  10. GOSERELIN [Concomitant]
     Active Substance: GOSERELIN
     Dates: start: 20230622
  11. PREGABALIN [Concomitant]
     Active Substance: PREGABALIN
  12. PREGABALIN [Concomitant]
     Active Substance: PREGABALIN
  13. PREGABALIN [Concomitant]
     Active Substance: PREGABALIN
     Dates: start: 20230530
  14. VITAMIN D [Concomitant]
     Active Substance: VITAMIN D NOS
     Dates: start: 20230322
  15. PIZOTYLINE [Concomitant]
     Active Substance: PIZOTYLINE
  16. LANSOPRAZOLE [Concomitant]
     Active Substance: LANSOPRAZOLE
  17. ESTRADIOL [Suspect]
     Active Substance: ESTRADIOL
     Dates: start: 20240423
  18. ESTRADIOL [Suspect]
     Active Substance: ESTRADIOL
     Dates: start: 20240515
  19. ESTRADIOL [Suspect]
     Active Substance: ESTRADIOL
     Dates: start: 20240612
  20. VAGIFEM [Suspect]
     Active Substance: ESTRADIOL
     Dates: start: 20230320
  21. VAGIFEM [Suspect]
     Active Substance: ESTRADIOL
  22. TESTOSTERONE [Suspect]
     Active Substance: TESTOSTERONE
     Dates: start: 20240406
  23. TESTOSTERONE [Suspect]
     Active Substance: TESTOSTERONE
     Dates: start: 20231016
  24. TESTOSTERONE [Suspect]
     Active Substance: TESTOSTERONE
     Dates: start: 20231004, end: 202310
  25. TESTOSTERONE [Suspect]
     Active Substance: TESTOSTERONE
     Dates: start: 20230322, end: 2023
  26. ESTRADIOL [Suspect]
     Active Substance: ESTRADIOL
     Dates: start: 202310
  27. ESTRADIOL [Suspect]
     Active Substance: ESTRADIOL
     Dates: start: 20231004, end: 202310
  28. ESTRADIOL [Suspect]
     Active Substance: ESTRADIOL
     Dates: start: 20221026, end: 202310

REACTIONS (16)
  - Adenomyosis [Unknown]
  - Intentional overdose [Unknown]
  - Product label issue [Unknown]
  - Therapeutic product effect decreased [Unknown]
  - Off label use [Unknown]
  - Arthralgia [Unknown]
  - Loss of libido [Unknown]
  - Asthenia [Unknown]
  - Anxiety [Unknown]
  - Pain in extremity [Unknown]
  - Blood oestrogen decreased [Unknown]
  - Vulvovaginal burning sensation [Unknown]
  - Affective disorder [Unknown]
  - Restless legs syndrome [Unknown]
  - Poor quality sleep [Unknown]
  - Brain fog [Unknown]

NARRATIVE: CASE EVENT DATE: 20230322
